FAERS Safety Report 6222769-6 (Version None)
Quarter: 2009Q2

REPORT INFORMATION
  Report Type: 
  Country: None (occurrence: None)
  Receive Date: 20090611
  Receipt Date: 20090604
  Transmission Date: 20091009
  Serious: Yes (Hospitalization)
  Sender: FDA-Public Use
  Company Number: A0788831A

PATIENT
  Sex: Female

DRUGS (1)
  1. LANOXIN [Suspect]
     Indication: SUPRAVENTRICULAR TACHYCARDIA
     Route: 048

REACTIONS (5)
  - BURN OF INTERNAL ORGANS [None]
  - HAEMORRHAGE [None]
  - NON-CARDIAC CHEST PAIN [None]
  - PAIN IN EXTREMITY [None]
  - RENAL PAIN [None]
